FAERS Safety Report 13619880 (Version 3)
Quarter: 2017Q2

REPORT INFORMATION
  Report Type: Report from Study
  Country: JP (occurrence: JP)
  Receive Date: 20170606
  Receipt Date: 20170620
  Transmission Date: 20170830
  Serious: Yes (Hospitalization, Other)
  Sender: FDA-Public Use
  Company Number: JP-AMGEN-JPNCT2016178234

PATIENT
  Age: 73 Year
  Sex: Male
  Weight: 46.9 kg

DRUGS (33)
  1. OXALIPLATIN. [Suspect]
     Active Substance: OXALIPLATIN
     Indication: RECTAL CANCER
     Dosage: 140 MG, Q2WEEKS
     Route: 041
     Dates: start: 20160916, end: 20160916
  2. OXALIPLATIN. [Suspect]
     Active Substance: OXALIPLATIN
     Dosage: 85 MG, Q2WEEKS
     Route: 041
     Dates: start: 20170303, end: 20170303
  3. FUROSEMIDE. [Suspect]
     Active Substance: FUROSEMIDE
     Dosage: 30 MG, UNK
     Route: 048
     Dates: start: 20170528
  4. SLOW-K [Suspect]
     Active Substance: POTASSIUM CHLORIDE
     Indication: HYPOKALAEMIA
     Dosage: 600 MG, BID
     Route: 048
     Dates: start: 20170331
  5. PANITUMUMAB [Suspect]
     Active Substance: PANITUMUMAB
     Dosage: 330 MG, Q2WK
     Route: 041
     Dates: start: 20161007, end: 20161028
  6. CALCIUM LEVOFOLINATE [Suspect]
     Active Substance: LEVOLEUCOVORIN CALCIUM
     Dosage: 325 MG, Q2WEEKS
     Route: 041
     Dates: start: 20161202, end: 20170303
  7. 5-FU                               /00098801/ [Suspect]
     Active Substance: FLUOROURACIL
     Dosage: 650 MG, Q2WK
     Route: 040
     Dates: start: 20161007, end: 20161028
  8. ELIQUIS [Concomitant]
     Active Substance: APIXABAN
     Indication: ATRIAL FIBRILLATION
     Dosage: 5 MG, BID
     Route: 048
     Dates: start: 20161007
  9. BIO-THREE [Concomitant]
     Active Substance: HERBALS
     Indication: DIARRHOEA
     Dosage: 2 DF, TID
     Route: 048
     Dates: start: 20140728
  10. OXALIPLATIN. [Suspect]
     Active Substance: OXALIPLATIN
     Dosage: 140 MG, Q2WEEKS
     Route: 041
     Dates: start: 20161007, end: 20161028
  11. 5-FU                               /00098801/ [Suspect]
     Active Substance: FLUOROURACIL
     Indication: RECTAL CANCER
     Dosage: 650 MG, Q2WK
     Route: 040
     Dates: start: 20160916, end: 20160916
  12. 5-FU                               /00098801/ [Suspect]
     Active Substance: FLUOROURACIL
     Dosage: 4100 MG, Q2WEEKS
     Route: 041
     Dates: start: 20160916, end: 20160916
  13. 5-FU                               /00098801/ [Suspect]
     Active Substance: FLUOROURACIL
     Dosage: 4100 MG, Q2WK
     Route: 041
     Dates: start: 20161007, end: 20161028
  14. 5-FU                               /00098801/ [Suspect]
     Active Substance: FLUOROURACIL
     Dosage: 340 MG, Q2WK
     Route: 040
     Dates: start: 20161202, end: 20170210
  15. PANITUMUMAB [Suspect]
     Active Substance: PANITUMUMAB
     Dosage: 200 MG, Q2WK
     Route: 041
     Dates: start: 20170331, end: 20170428
  16. ALENDRONATE [Concomitant]
     Active Substance: ALENDRONATE SODIUM
     Indication: OSTEOPOROSIS
     Dosage: 35 MG, 1/WEEK
     Route: 048
     Dates: start: 20170227
  17. PANITUMUMAB [Suspect]
     Active Substance: PANITUMUMAB
     Indication: RECTAL CANCER
     Dosage: 330 MG, Q2WK
     Route: 041
     Dates: start: 20160916, end: 20160916
  18. PANITUMUMAB [Suspect]
     Active Substance: PANITUMUMAB
     Dosage: 260 MG, Q2WK
     Route: 041
     Dates: start: 20170106, end: 20170210
  19. OXALIPLATIN. [Suspect]
     Active Substance: OXALIPLATIN
     Dosage: 110 MG, Q2WEEKS
     Route: 041
     Dates: start: 20161202, end: 20170210
  20. 5-FU                               /00098801/ [Suspect]
     Active Substance: FLUOROURACIL
     Dosage: 2750 MG, Q2WEEKS
     Route: 041
     Dates: start: 20170303, end: 20170303
  21. 5-FU                               /00098801/ [Suspect]
     Active Substance: FLUOROURACIL
     Dosage: 2750 MG, Q2WEEKS
     Route: 041
     Dates: start: 20170331, end: 20170428
  22. FUROSEMIDE. [Suspect]
     Active Substance: FUROSEMIDE
     Dosage: 30 MG, UNK
     Route: 048
     Dates: start: 20160604
  23. CALONAL [Concomitant]
     Active Substance: ACETAMINOPHEN
     Indication: BACK PAIN
     Dosage: 400 MG, UNK
     Route: 048
     Dates: start: 20170331
  24. OXALIPLATIN. [Suspect]
     Active Substance: OXALIPLATIN
     Dosage: 85 MG, Q2WEEKS
     Route: 041
     Dates: start: 20170331, end: 20170414
  25. CALCIUM LEVOFOLINATE [Suspect]
     Active Substance: LEVOLEUCOVORIN CALCIUM
     Dosage: 325 MG, Q2WEEKS
     Route: 041
     Dates: start: 20170331, end: 20170428
  26. FUROSEMIDE. [Suspect]
     Active Substance: FUROSEMIDE
     Dosage: 40 MG, UNK
     Route: 048
     Dates: start: 20170601
  27. TAKECAB [Concomitant]
     Active Substance: VONOPRAZAN FUMURATE
     Indication: GASTROOESOPHAGEAL REFLUX DISEASE
     Dosage: 20 MG, QD
     Route: 048
     Dates: start: 20160916
  28. PANITUMUMAB [Suspect]
     Active Substance: PANITUMUMAB
     Dosage: 330 MG, Q2WK
     Route: 041
     Dates: start: 20161202, end: 20161202
  29. CALCIUM LEVOFOLINATE [Suspect]
     Active Substance: LEVOLEUCOVORIN CALCIUM
     Indication: RECTAL CANCER
     Dosage: 325 MG, Q2WEEKS
     Route: 041
     Dates: start: 20160916, end: 20160916
  30. 5-FU                               /00098801/ [Suspect]
     Active Substance: FLUOROURACIL
     Dosage: 3400 MG, Q2WK
     Route: 041
     Dates: start: 20161202, end: 20170210
  31. FUROSEMIDE. [Suspect]
     Active Substance: FUROSEMIDE
     Dosage: 10 MG, QD
     Route: 048
     Dates: start: 20170520
  32. CALCIUM LEVOFOLINATE [Suspect]
     Active Substance: LEVOLEUCOVORIN CALCIUM
     Dosage: 325 MG, Q2WEEKS
     Route: 041
     Dates: start: 20161007, end: 20161028
  33. FUROSEMIDE. [Suspect]
     Active Substance: FUROSEMIDE
     Indication: OEDEMA PERIPHERAL
     Dosage: 20 MG, UNK
     Route: 048
     Dates: start: 20170324

REACTIONS (3)
  - Diarrhoea [Unknown]
  - Stomatitis [Unknown]
  - Cardiac failure [Recovering/Resolving]

NARRATIVE: CASE EVENT DATE: 20170525
